FAERS Safety Report 14531899 (Version 1)
Quarter: 2018Q1

REPORT INFORMATION
  Report Type: Other
  Country: None (occurrence: US)
  Receive Date: 20180214
  Receipt Date: 20180214
  Transmission Date: 20180509
  Serious: Yes (Other)
  Sender: FDA-Public Use
  Company Number: US-GUTHY-RENKER, LLC-2041972

PATIENT
  Sex: Female

DRUGS (3)
  1. VENTOLIN INHALER AND OTHER UNDISCLOSED MEDICATIONS [Concomitant]
  2. ACCELERATED DARK SPOT CORRECTOR [Suspect]
     Active Substance: HYDROQUINONE
     Indication: SKIN DISCOLOURATION
     Route: 061
     Dates: start: 20180203, end: 20180205
  3. ACTIVE RADIANCE DAY MOISTURE SPF 30 [Concomitant]
     Active Substance: AVOBENZONE\OCTINOXATE\OCTISALATE\OCTOCRYLENE\OXYBENZONE
     Route: 061
     Dates: start: 201702

REACTIONS (1)
  - Wheezing [Recovered/Resolved]

NARRATIVE: CASE EVENT DATE: 20180205
